FAERS Safety Report 10145046 (Version 9)
Quarter: 2016Q1

REPORT INFORMATION
  Report Type: Report from Study
  Country: CA (occurrence: CA)
  Receive Date: 20140501
  Receipt Date: 20160226
  Transmission Date: 20160525
  Serious: Yes (Life-Threatening, Hospitalization, Other)
  Sender: FDA-Public Use
  Company Number: CA-ROCHE-1373102

PATIENT
  Age: 25 Year
  Sex: Female
  Weight: 159 kg

DRUGS (12)
  1. LANSOPRAZOLE. [Concomitant]
     Active Substance: LANSOPRAZOLE
  2. RITUXAN [Suspect]
     Active Substance: RITUXIMAB
     Route: 042
     Dates: start: 20080201
  3. PREDNISONE. [Concomitant]
     Active Substance: PREDNISONE
  4. CELLCEPT [Concomitant]
     Active Substance: MYCOPHENOLATE MOFETIL\MYCOPHENOLATE MOFETIL HYDROCHLORIDE
  5. METHYLPREDNISOLONE. [Concomitant]
     Active Substance: METHYLPREDNISOLONE
     Indication: PREMEDICATION
     Route: 042
     Dates: start: 20140512
  6. CELEBREX [Concomitant]
     Active Substance: CELECOXIB
  7. RITUXAN [Suspect]
     Active Substance: RITUXIMAB
     Route: 042
     Dates: start: 20140512
  8. ACETAMINOPHEN. [Concomitant]
     Active Substance: ACETAMINOPHEN
     Indication: PREMEDICATION
     Route: 048
     Dates: start: 20140512
  9. DIPHENHYDRAMINE HCL [Concomitant]
     Active Substance: DIPHENHYDRAMINE HYDROCHLORIDE
     Indication: PREMEDICATION
     Route: 048
     Dates: start: 20140512
  10. GABAPENTIN. [Concomitant]
     Active Substance: GABAPENTIN
     Indication: FIBROMYALGIA
  11. TRAMADOL. [Concomitant]
     Active Substance: TRAMADOL
     Indication: PAIN
  12. RITUXAN [Suspect]
     Active Substance: RITUXIMAB
     Indication: SYSTEMIC LUPUS ERYTHEMATOSUS
     Route: 042
     Dates: start: 20080117

REACTIONS (18)
  - Systemic lupus erythematosus [Unknown]
  - Infusion related reaction [Unknown]
  - Nausea [Not Recovered/Not Resolved]
  - Psychotic disorder [Unknown]
  - Homicidal ideation [Not Recovered/Not Resolved]
  - Hypertension [Unknown]
  - Off label use [Unknown]
  - Blood pressure increased [Unknown]
  - Chest discomfort [Recovered/Resolved]
  - Palpitations [Recovered/Resolved]
  - Dyspnoea [Recovered/Resolved]
  - Dysphagia [Recovered/Resolved]
  - Oxygen saturation decreased [Unknown]
  - Suicidal ideation [Not Recovered/Not Resolved]
  - Blood pressure fluctuation [Unknown]
  - Throat tightness [Recovered/Resolved]
  - Injection site pain [Unknown]
  - Weight increased [Unknown]

NARRATIVE: CASE EVENT DATE: 20140512
